FAERS Safety Report 7883819-4 (Version None)
Quarter: 2011Q4

REPORT INFORMATION
  Report Type: 
  Country: None (occurrence: None)
  Receive Date: 20111102
  Receipt Date: 20111026
  Transmission Date: 20120403
  Serious: Yes (Hospitalization, Other)
  Sender: FDA-Public Use
  Company Number: US-ACTELION-A-US2010-40818

PATIENT

DRUGS (1)
  1. TRACLEER [Suspect]
     Indication: PULMONARY ARTERIAL HYPERTENSION
     Dosage: UNK
     Route: 048
     Dates: start: 20100101

REACTIONS (8)
  - ASTHENIA [None]
  - STENT PLACEMENT [None]
  - ANAEMIA [None]
  - RED BLOOD CELL COUNT DECREASED [None]
  - HAEMORRHAGE [None]
  - ARRHYTHMIA [None]
  - GAIT DISTURBANCE [None]
  - ARTERIAL OCCLUSIVE DISEASE [None]
